FAERS Safety Report 9546157 (Version 1)
Quarter: 2013Q3

REPORT INFORMATION
  Report Type: Report from Study
  Country: US (occurrence: US)
  Receive Date: 20130923
  Receipt Date: 20130923
  Transmission Date: 20140515
  Serious: Yes (Hospitalization)
  Sender: FDA-Public Use
  Company Number: US-ROCHE-1279238

PATIENT
  Sex: Male

DRUGS (5)
  1. LUCENTIS [Suspect]
     Indication: DIABETIC RETINOPATHY
     Dosage: GIVEN OD
     Route: 065
  2. METFORMIN [Concomitant]
     Route: 065
  3. COMBIGAN [Concomitant]
     Dosage: OU BID
     Route: 065
  4. CLINDAMYCIN [Concomitant]
     Route: 065
  5. LOSARTAN [Concomitant]

REACTIONS (3)
  - Localised infection [Unknown]
  - Cellulitis [Unknown]
  - Vision blurred [Unknown]
